FAERS Safety Report 10223065 (Version 1)
Quarter: 2014Q2

REPORT INFORMATION
  Report Type: Report from Study
  Country: AR (occurrence: AR)
  Receive Date: 20140607
  Receipt Date: 20140607
  Transmission Date: 20141212
  Serious: Yes (Other)
  Sender: FDA-Public Use
  Company Number: PHHY2014AR066959

PATIENT
  Age: 77 Year
  Sex: Female

DRUGS (2)
  1. ONBREZ [Suspect]
     Indication: ASTHMA
     Dosage: 1 DF PER DAY
     Route: 048
  2. ONBREZ [Suspect]
     Indication: OFF LABEL USE

REACTIONS (10)
  - Asthma [Recovering/Resolving]
  - Bronchospasm [Recovering/Resolving]
  - Total lung capacity decreased [Recovering/Resolving]
  - Agitation [Recovering/Resolving]
  - Productive cough [Recovering/Resolving]
  - Secretion discharge [Recovering/Resolving]
  - Aphonia [Recovering/Resolving]
  - Nasopharyngitis [Recovering/Resolving]
  - Respiratory tract congestion [Recovering/Resolving]
  - Cough [Recovering/Resolving]
